FAERS Safety Report 4313382-6 (Version None)
Quarter: 2004Q1

REPORT INFORMATION
  Report Type: 
  Country: None (occurrence: None)
  Receive Date: 20040304
  Receipt Date: 20040210
  Transmission Date: 20041129
  Serious: Yes (Death)
  Sender: FDA-Public Use
  Company Number: 0410001

PATIENT
  Sex: Female

DRUGS (19)
  1. ORFADIN [Suspect]
     Indication: BLOOD AMINO ACID LEVEL INCREASED
     Dosage: 1-2 MG/KG/DAY
     Route: 048
     Dates: start: 20030917, end: 20030923
  2. CARNITINE CARNITINE [Concomitant]
  3. CATECHOLAMINE CATECHOLAMINE [Concomitant]
  4. DIFLUCAN DIFLUCAN [Concomitant]
  5. DIPYRONE NOVALGIN [Concomitant]
  6. FACTOR (X PREPARATION) PPSB [Concomitant]
  7. FENTANYL [Concomitant]
  8. LASIX [Concomitant]
  9. ALBUMIN (HUMAN) [Concomitant]
  10. MIDAZOLAM HYDROCHLORIDE DORMICUM [Concomitant]
  11. OMEPRAZOLE ANTRA [Concomitant]
  12. PIPERACILIN SODIUM PIPRIL [Concomitant]
  13. PREDNISOLONE SODIUM SUCCINATE SOLUDECORTIN [Concomitant]
  14. SODIUM BENZOATE SODIUM BENZOATE [Concomitant]
  15. SODIUM BICARBONATE [Concomitant]
  16. THEOPHYLLINE [Concomitant]
  17. TOBRAMYCIN SULFATE GERNEBCIN [Concomitant]
  18. FFP/PLATELET/BRC TRANSFUSION [Concomitant]
  19. VANCOMYCIN [Concomitant]

REACTIONS (2)
  - HAEMORRHAGE INTRACRANIAL [None]
  - HEPATIC CIRRHOSIS [None]
